FAERS Safety Report 9764645 (Version 2)
Quarter: 2013Q4

REPORT INFORMATION
  Report Type: Spontaneous
  Country: US (occurrence: US)
  Receive Date: 20131217
  Receipt Date: 20131217
  Transmission Date: 20140711
  Serious: No
  Sender: FDA-Public Use
  Company Number: US-BAYER-2013-151122

PATIENT
  Age: 68 Year
  Sex: Female

DRUGS (2)
  1. CLIMARA FORTE [Suspect]
     Dosage: UNK
     Route: 062
     Dates: start: 201310, end: 201311
  2. CLIMARA [Suspect]
     Dosage: UNK
     Route: 062
     Dates: start: 201312, end: 201312

REACTIONS (5)
  - Skin exfoliation [Recovered/Resolved]
  - Pruritus [None]
  - Mood swings [Recovering/Resolving]
  - Anger [Recovering/Resolving]
  - Suspected counterfeit product [None]
